FAERS Safety Report 7604859-6 (Version None)
Quarter: 2011Q3

REPORT INFORMATION
  Report Type: 
  Country: None (occurrence: None)
  Receive Date: 20110712
  Receipt Date: 20110705
  Transmission Date: 20111222
  Serious: Yes (Other)
  Sender: FDA-Public Use
  Company Number: US-RB-025018-11

PATIENT
  Age: 46 Year
  Sex: Female

DRUGS (6)
  1. SUBUTEX [Suspect]
     Dosage: DOSING INFORMATION UNKNOWN
     Route: 065
     Dates: start: 20110301, end: 20110301
  2. SUBOXONE [Suspect]
     Dosage: DOSING INFORMATION UNKNOWN
     Route: 065
     Dates: start: 20110101
  3. SUBUTEX [Suspect]
     Indication: PRODUCT USED FOR UNKNOWN INDICATION
     Dosage: DOSING INFORMATION UNKNOWN
     Route: 065
  4. SUBOXONE [Suspect]
     Indication: PRODUCT USED FOR UNKNOWN INDICATION
     Dosage: SUBLINGUAL FILM; DOSING INFORMATION UNKNOWN
     Route: 060
     Dates: start: 20110101, end: 20110101
  5. BUPRENORPHINE [Suspect]
     Indication: PRODUCT USED FOR UNKNOWN INDICATION
     Dosage: DOSING DETAILS UNKNOWN.
     Route: 065
  6. SUBOXONE [Suspect]
     Indication: PRODUCT USED FOR UNKNOWN INDICATION
     Dosage: DOSING INFORMATION UNKNOWN
     Route: 060
     Dates: start: 20110301, end: 20110301

REACTIONS (27)
  - MUSCLE SPASMS [None]
  - CHILLS [None]
  - LACRIMATION INCREASED [None]
  - DEPRESSION [None]
  - DYSPNOEA [None]
  - NAUSEA [None]
  - DRUG WITHDRAWAL SYNDROME [None]
  - UNEVALUABLE EVENT [None]
  - STRESS [None]
  - VOMITING [None]
  - MIOSIS [None]
  - BLISTER [None]
  - HEADACHE [None]
  - WRONG TECHNIQUE IN DRUG USAGE PROCESS [None]
  - THERAPEUTIC RESPONSE DECREASED [None]
  - SUICIDAL IDEATION [None]
  - SNEEZING [None]
  - MALAISE [None]
  - HYPERHIDROSIS [None]
  - WEIGHT INCREASED [None]
  - PAIN [None]
  - HYPOAESTHESIA ORAL [None]
  - ANXIETY [None]
  - FEELING OF BODY TEMPERATURE CHANGE [None]
  - CONSTIPATION [None]
  - DRUG DEPENDENCE [None]
  - COUGH [None]
